FAERS Safety Report 11200700 (Version 3)
Quarter: 2015Q4

REPORT INFORMATION
  Report Type: Spontaneous
  Country: FR (occurrence: FR)
  Receive Date: 20150618
  Receipt Date: 20151231
  Transmission Date: 20160304
  Serious: Yes (Death, Hospitalization, Other)
  Sender: FDA-Public Use
  Company Number: FR-GILEAD-2015-0158354

PATIENT
  Age: 57 Year
  Sex: Male

DRUGS (13)
  1. COPEGUS [Suspect]
     Active Substance: RIBAVIRIN
     Dosage: 600 MG, BID
     Route: 048
     Dates: start: 20150116, end: 20150402
  2. OLANZAPINE. [Concomitant]
     Active Substance: OLANZAPINE
  3. FORLAX [Concomitant]
     Active Substance: POLYETHYLENE GLYCOL 4000
  4. VITAMIN E [Concomitant]
     Active Substance: .ALPHA.-TOCOPHEROL
  5. HARVONI [Suspect]
     Active Substance: LEDIPASVIR\SOFOSBUVIR
     Indication: HEPATITIS C
     Dosage: 1 DF, QD
     Route: 048
     Dates: start: 20150108, end: 20150402
  6. PARKINANE LP [Concomitant]
     Active Substance: TRIHEXYPHENIDYL HYDROCHLORIDE
  7. SERESTA [Concomitant]
     Active Substance: OXAZEPAM
  8. NOCTAMIDE [Concomitant]
     Active Substance: LORMETAZEPAM
  9. TERALITHE [Concomitant]
     Active Substance: LITHIUM CARBONATE
  10. COPEGUS [Suspect]
     Active Substance: RIBAVIRIN
     Indication: HEPATITIS C
     Dosage: 400 MG, BID
     Route: 048
     Dates: start: 20150108, end: 20150115
  11. UVEDOSE [Concomitant]
     Active Substance: CHOLECALCIFEROL
     Dosage: UNK
     Dates: start: 20140415
  12. HEPTAMYL [Concomitant]
     Active Substance: HEPTAMINOL HYDROCHLORIDE
  13. SULFARLEM [Concomitant]
     Active Substance: ANETHOLTRITHION

REACTIONS (13)
  - General physical health deterioration [Unknown]
  - Abdominal pain [Unknown]
  - Ascites [Unknown]
  - Vomiting [Unknown]
  - Faecaloma [Unknown]
  - General physical condition abnormal [Unknown]
  - Diarrhoea [Unknown]
  - Hepatic cirrhosis [Fatal]
  - Anaemia [Recovered/Resolved]
  - Hepatic cancer metastatic [Fatal]
  - Dyspnoea [Unknown]
  - Encephalopathy [Unknown]
  - Hepatomegaly [Unknown]

NARRATIVE: CASE EVENT DATE: 2015
